FAERS Safety Report 12503250 (Version 1)
Quarter: 2016Q2

REPORT INFORMATION
  Report Type: Spontaneous
  Country: US (occurrence: None)
  Receive Date: 20160627
  Receipt Date: 20160627
  Transmission Date: 20160815
  Serious: Yes (Other)
  Sender: FDA-Public Use
  Company Number: None

PATIENT
  Age: 52 Year
  Sex: Female
  Weight: 74.39 kg

DRUGS (9)
  1. FETZIMA [Suspect]
     Active Substance: LEVOMILNACIPRAN HYDROCHLORIDE
     Indication: DEPRESSION
     Route: 048
     Dates: start: 20160613, end: 20160625
  2. LOVASTATIN. [Concomitant]
     Active Substance: LOVASTATIN
  3. FETZIMA [Suspect]
     Active Substance: LEVOMILNACIPRAN HYDROCHLORIDE
     Indication: PAIN
     Route: 048
     Dates: start: 20160613, end: 20160625
  4. LISINOPRIL. [Concomitant]
     Active Substance: LISINOPRIL
  5. OTEZLA [Concomitant]
     Active Substance: APREMILAST
  6. NAPROXIN [Concomitant]
     Active Substance: NAPROXEN
  7. TOPROL XL [Concomitant]
     Active Substance: METOPROLOL SUCCINATE
  8. NORCO [Concomitant]
     Active Substance: ACETAMINOPHEN\HYDROCODONE BITARTRATE
  9. GABAPENTIN. [Concomitant]
     Active Substance: GABAPENTIN

REACTIONS (1)
  - Rash generalised [None]

NARRATIVE: CASE EVENT DATE: 20160624
